FAERS Safety Report 4386333-6 (Version None)
Quarter: 2004Q2

REPORT INFORMATION
  Report Type: 
  Country: None (occurrence: None)
  Receive Date: 20040623
  Receipt Date: 20040614
  Transmission Date: 20050107
  Serious: Yes (Hospitalization)
  Sender: FDA-Public Use
  Company Number: 2004218468MX

PATIENT
  Age: 16 Year
  Sex: Female

DRUGS (2)
  1. CLINDAMYCIN HCL [Suspect]
     Indication: ANTIBACTERIAL PROPHYLAXIS
     Dosage: 300 MG, QID, ORAL
     Route: 048
     Dates: start: 20040602, end: 20040602
  2. CEFTRIAXONE [Suspect]
     Dosage: 1 G, BID, IV
     Route: 042
     Dates: start: 20040531, end: 20040602

REACTIONS (1)
  - HEPATITIS A [None]
